FAERS Safety Report 6829858-3 (Version None)
Quarter: 2010Q3

REPORT INFORMATION
  Report Type: 
  Country: None (occurrence: None)
  Receive Date: 20100710
  Receipt Date: 20090114
  Transmission Date: 20110219
  Serious: Yes (Death, Hospitalization, Other)
  Sender: FDA-Public Use
  Company Number: GB-JNJFOC-20100701133

PATIENT
  Age: 67 Year
  Sex: Male
  Weight: 76 kg

DRUGS (11)
  1. ACETAMINOPHEN AND CODEINE PHOSPHATE [Suspect]
     Indication: PAIN
     Dosage: 2 DF
     Route: 048
  2. OLANZAPINE [Suspect]
     Indication: PSYCHOTIC DISORDER
     Route: 048
  3. OLANZAPINE [Suspect]
     Indication: ANXIETY
     Route: 048
  4. MORPHINE [Suspect]
     Indication: PRODUCT USED FOR UNKNOWN INDICATION
     Route: 065
  5. CHLORPROMAZINE [Concomitant]
     Indication: PSYCHOTIC DISORDER
     Route: 048
  6. CHLORPROMAZINE [Concomitant]
     Indication: ANXIETY
     Route: 048
  7. ASPIRIN [Concomitant]
     Route: 048
  8. CEFUROXIME [Concomitant]
     Indication: PROPHYLAXIS
     Route: 042
  9. CLEXANE [Concomitant]
     Indication: THROMBOSIS PROPHYLAXIS
     Route: 058
  10. DICLOFENAC SODIUM [Concomitant]
     Indication: POSTOPERATIVE ANALGESIA
     Route: 048
  11. PROPRANOLOL [Concomitant]
     Indication: ANXIETY
     Route: 048

REACTIONS (13)
  - AORTIC ARTERIOSCLEROSIS [None]
  - ARTERIOSCLEROSIS CORONARY ARTERY [None]
  - ASPIRATION [None]
  - BRONCHOPNEUMONIA [None]
  - CARDIAC ARREST [None]
  - DRUG LEVEL ABOVE THERAPEUTIC [None]
  - DRUG TOXICITY [None]
  - FALL [None]
  - FEMORAL NECK FRACTURE [None]
  - ORTHOSTATIC HYPOTENSION [None]
  - OVERDOSE [None]
  - PULMONARY OEDEMA [None]
  - SYNCOPE [None]
